FAERS Safety Report 8598946-6 (Version None)
Quarter: 2012Q3

REPORT INFORMATION
  Report Type: 
  Country: None (occurrence: None)
  Receive Date: 20120816
  Receipt Date: 20120808
  Transmission Date: 20120928
  Serious: Yes (Hospitalization, Other)
  Sender: FDA-Public Use
  Company Number: SE-ASTRAZENECA-2012SE45815

PATIENT
  Age: 56 Year
  Sex: Male

DRUGS (8)
  1. BRILINTA [Suspect]
     Indication: HYPERTONIA
     Route: 048
     Dates: start: 20120521, end: 20120604
  2. LIPITOR [Concomitant]
  3. ASPIRIN [Concomitant]
  4. METOPROLOL TARTRATE [Concomitant]
  5. AMLODIPINE [Concomitant]
  6. BRILINTA [Suspect]
     Indication: ACUTE MYOCARDIAL INFARCTION
     Route: 048
     Dates: start: 20120521, end: 20120604
  7. ENALAPRIL MALEATE [Concomitant]
  8. SPIRONOLACTONE [Concomitant]

REACTIONS (4)
  - UNRESPONSIVE TO STIMULI [None]
  - CEREBROVASCULAR ACCIDENT [None]
  - BLOOD PRESSURE IMMEASURABLE [None]
  - GASTRIC ULCER HAEMORRHAGE [None]
